FAERS Safety Report 16575159 (Version 1)
Quarter: 2019Q3

REPORT INFORMATION
  Report Type: Report from Study
  Country: MX (occurrence: MX)
  Receive Date: 20190715
  Receipt Date: 20190715
  Transmission Date: 20191004
  Serious: Yes (Other)
  Sender: FDA-Public Use
  Company Number: PHHY2019MX163108

PATIENT
  Sex: Female

DRUGS (1)
  1. EXFORGE HCT [Suspect]
     Active Substance: AMLODIPINE BESYLATE\HYDROCHLOROTHIAZIDE\VALSARTAN
     Indication: PRODUCT USED FOR UNKNOWN INDICATION
     Dosage: 2 DF, BID
     Route: 065

REACTIONS (6)
  - Product prescribing error [Unknown]
  - Visual impairment [Unknown]
  - Hypertension [Unknown]
  - Inappropriate schedule of product administration [Unknown]
  - Diabetes mellitus [Unknown]
  - Malaise [Unknown]
